FAERS Safety Report 9519583 (Version 2)
Quarter: 2013Q4

REPORT INFORMATION
  Report Type: Spontaneous
  Country: DE (occurrence: DE)
  Receive Date: 20130912
  Receipt Date: 20131011
  Transmission Date: 20140711
  Serious: Yes (Other)
  Sender: FDA-Public Use
  Company Number: DE-BRACCO-001485

PATIENT
  Age: 67 Year
  Sex: Male

DRUGS (1)
  1. PROHANCE [Suspect]
     Indication: ANGIOGRAM
     Route: 042
     Dates: start: 20130830, end: 20130830

REACTIONS (1)
  - Syncope [Recovered/Resolved]
